FAERS Safety Report 9239233 (Version 3)
Quarter: 2013Q4

REPORT INFORMATION
  Report Type: Spontaneous
  Country: US (occurrence: US)
  Receive Date: 20130417
  Receipt Date: 20131009
  Transmission Date: 20140711
  Serious: Yes (Other)
  Sender: FDA-Public Use
  Company Number: US-RB-032540-11

PATIENT
  Age: 31 Year
  Sex: Female
  Weight: 118.8 kg

DRUGS (6)
  1. SUBUTEX [Suspect]
     Indication: DRUG DEPENDENCE
     Dosage: UNIT DOSE UNKNOWN
     Route: 065
     Dates: start: 201109
  2. HEROIN [Suspect]
     Indication: SUBSTANCE ABUSE
     Dosage: DETAILS UNKNOWN
     Route: 065
     Dates: end: 20110919
  3. OXYCODONE [Suspect]
     Indication: SUBSTANCE ABUSE
     Dosage: DOSING DETAILS UNKNOWN
     Route: 065
     Dates: end: 20110919
  4. MARIJUANA [Suspect]
     Indication: SUBSTANCE ABUSE
     Dosage: DOSING DETAILS UNKNOWN
     Route: 065
     Dates: end: 20110919
  5. PRE-NATAL [Concomitant]
     Indication: PREGNANCY
     Dosage: DAILY-UNKNOWN EXACT DOSING DETAILS
     Route: 065
  6. NICOTINE [Concomitant]
     Indication: PRODUCT USED FOR UNKNOWN INDICATION
     Dosage: 10 CIGARETTES DAILY
     Route: 065

REACTIONS (3)
  - Maternal exposure during pregnancy [Recovered/Resolved]
  - Drug abuse [Recovered/Resolved]
  - Premature delivery [Recovered/Resolved]
